APPROVED DRUG PRODUCT: KETOCONAZOLE
Active Ingredient: KETOCONAZOLE
Strength: 200MG
Dosage Form/Route: TABLET;ORAL
Application: A210457 | Product #001 | TE Code: AB
Applicant: STRIDES PHARMA GLOBAL PTE LTD
Approved: Jun 18, 2018 | RLD: No | RS: No | Type: RX